FAERS Safety Report 12755035 (Version 5)
Quarter: 2017Q1

REPORT INFORMATION
  Report Type: Report from Study
  Country: AU (occurrence: GB)
  Receive Date: 20160916
  Receipt Date: 20170118
  Transmission Date: 20170428
  Serious: Yes (Hospitalization, Other)
  Sender: FDA-Public Use
  Company Number: AU-ASTELLAS-2016US034666

PATIENT
  Age: 70 Year
  Sex: Male
  Weight: 59 kg

DRUGS (5)
  1. DEGARELIX [Concomitant]
     Active Substance: DEGARELIX
     Indication: PROSTATE CANCER
     Route: 058
     Dates: start: 20151119
  2. DEGARELIX [Concomitant]
     Active Substance: DEGARELIX
     Route: 058
  3. ENZALUTAMIDE [Suspect]
     Active Substance: ENZALUTAMIDE
     Indication: PROSTATE CANCER METASTATIC
     Route: 048
     Dates: start: 20160118, end: 20160818
  4. OMEPRAZOLE. [Concomitant]
     Active Substance: OMEPRAZOLE
     Indication: PEPTIC ULCER
     Route: 048
     Dates: start: 2015
  5. TAMSULOSIN [Concomitant]
     Active Substance: TAMSULOSIN
     Indication: LOWER URINARY TRACT SYMPTOMS
     Route: 048

REACTIONS (1)
  - Mania [Recovered/Resolved with Sequelae]

NARRATIVE: CASE EVENT DATE: 20160817
